FAERS Safety Report 6502996-0 (Version None)
Quarter: 2009Q4

REPORT INFORMATION
  Report Type: 
  Country: None (occurrence: None)
  Receive Date: 20091217
  Receipt Date: 20091204
  Transmission Date: 20100525
  Serious: Yes (Hospitalization, Other)
  Sender: FDA-Public Use
  Company Number: CZ-ELI_LILLY_AND_COMPANY-CZ200911006787

PATIENT
  Sex: Female

DRUGS (4)
  1. FORTEO [Suspect]
     Indication: OSTEOPOROSIS POSTMENOPAUSAL
     Dosage: 20 UG, DAILY (1/D)
     Route: 058
     Dates: start: 20080522, end: 20091015
  2. BIOMIN H [Concomitant]
     Indication: OSTEOPOROSIS POSTMENOPAUSAL
     Dosage: UNK, UNKNOWN
     Route: 048
  3. VIGANTOL [Concomitant]
     Indication: OSTEOPOROSIS POSTMENOPAUSAL
     Dosage: UNK, UNKNOWN
     Route: 048
  4. ESCIN [Concomitant]
     Dosage: UNK, UNKNOWN
     Route: 048

REACTIONS (2)
  - LYMPHOMA [None]
  - NERVE COMPRESSION [None]
